FAERS Safety Report 6839935-9 (Version None)
Quarter: 2010Q3

REPORT INFORMATION
  Report Type: 
  Country: None (occurrence: None)
  Receive Date: 20100714
  Receipt Date: 20100708
  Transmission Date: 20110219
  Serious: Yes (Death)
  Sender: FDA-Public Use
  Company Number: JP-EISAI INC.-E2020-07031-SPO-JP

PATIENT
  Age: 88 Year
  Sex: Male

DRUGS (11)
  1. ARICEPT [Suspect]
     Indication: DEMENTIA ALZHEIMER'S TYPE
     Route: 048
     Dates: end: 20100607
  2. ARICEPT [Suspect]
     Route: 048
     Dates: start: 20100608, end: 20100617
  3. OLMETEC [Concomitant]
  4. ASPIRIN [Concomitant]
  5. TANATRIL [Concomitant]
  6. EC DOPARL [Concomitant]
  7. CELECOX [Concomitant]
  8. ISALON [Concomitant]
  9. YOKUKAN-SAN [Concomitant]
  10. CRESTOR [Concomitant]
  11. ELCITONIN [Concomitant]

REACTIONS (1)
  - MYOCARDIAL INFARCTION [None]
